FAERS Safety Report 4666672-1 (Version None)
Quarter: 2005Q2

REPORT INFORMATION
  Report Type: 
  Country: None (occurrence: None)
  Receive Date: 20050519
  Receipt Date: 20050202
  Transmission Date: 20051028
  Serious: Yes (Hospitalization)
  Sender: FDA-Public Use
  Company Number: PHBS2005IT01940

PATIENT
  Age: 64 Year
  Sex: Male

DRUGS (7)
  1. AREDIA [Suspect]
     Indication: METASTASES TO BONE
     Dosage: 90 MG, QMO
     Route: 042
     Dates: start: 19990208, end: 20000501
  2. CARBOPLATIN [Concomitant]
     Route: 065
  3. VINORELBINE TARTRATE [Concomitant]
     Route: 065
  4. CONTRAMAL [Concomitant]
     Route: 065
  5. FARLUTAL [Concomitant]
     Route: 065
  6. ROCEPHIN [Concomitant]
     Route: 065
  7. GLAZIDIM [Concomitant]
     Route: 065

REACTIONS (4)
  - ASPERGILLOSIS [None]
  - OSTEITIS [None]
  - OSTEOMYELITIS [None]
  - TOOTH ABSCESS [None]
